FAERS Safety Report 8157588-7 (Version None)
Quarter: 2012Q1

REPORT INFORMATION
  Report Type: 
  Country: None (occurrence: None)
  Receive Date: 20120222
  Receipt Date: 20110728
  Transmission Date: 20120608
  Serious: No
  Sender: FDA-Public Use
  Company Number: US-ASTRAZENECA-2011SE45530

PATIENT
  Sex: Female

DRUGS (21)
  1. TENORMIN [Suspect]
     Route: 065
  2. DILTIAZEM HCL [Concomitant]
  3. NEURONTIN [Concomitant]
  4. CRESTOR [Concomitant]
  5. ALLEGRA [Concomitant]
  6. HYDROCHLOROTHIAZIDE [Concomitant]
  7. PREMARIN [Concomitant]
  8. ULTRAM [Concomitant]
  9. ASPIRIN [Concomitant]
  10. FLEXERIL [Concomitant]
  11. LEVOXYL [Concomitant]
  12. QVAR 40 [Concomitant]
  13. LISINOPRIL [Concomitant]
  14. NASACORT AQ [Concomitant]
  15. SODIUM CHLORIDE 0.65% NASL MIST [Concomitant]
  16. ALBUTEROL [Concomitant]
  17. AMITRIPTYLINE HCL [Concomitant]
  18. METFORMIN HCL [Concomitant]
  19. VITAMIN D [Concomitant]
  20. CALCIUM [Concomitant]
  21. LEXAPRO [Concomitant]

REACTIONS (2)
  - DEPRESSION [None]
  - DRUG INTOLERANCE [None]
